FAERS Safety Report 6485225-6 (Version None)
Quarter: 2009Q4

REPORT INFORMATION
  Report Type: 
  Country: None (occurrence: None)
  Receive Date: 20091203
  Receipt Date: 20091119
  Transmission Date: 20100525
  Serious: Yes (Hospitalization)
  Sender: FDA-Public Use
  Company Number: 2009AL007362

PATIENT
  Age: 65 Year
  Sex: Male

DRUGS (9)
  1. CHLORPROMAZINE HYDROCHLORIDE [Suspect]
     Dosage: 75 MG; QD; PO
     Route: 048
  2. FLUVOXAMINE MALEATE [Suspect]
     Dosage: 150 MG; QD; PO
     Route: 048
  3. CLOMIPRAMINE [Concomitant]
  4. CANDESARTAN CILEXETIL [Concomitant]
  5. MIANSERIN [Concomitant]
  6. SULPIRIDE [Concomitant]
  7. BROMAZEPAM [Concomitant]
  8. ESTAZOLAM [Concomitant]
  9. BROTIZOLAM [Concomitant]

REACTIONS (10)
  - ANTICHOLINERGIC SYNDROME [None]
  - BLADDER DILATATION [None]
  - DEPRESSION [None]
  - OEDEMA PERIPHERAL [None]
  - PULMONARY EMBOLISM [None]
  - SKIN DISCOLOURATION [None]
  - STUPOR [None]
  - TENDERNESS [None]
  - TREATMENT FAILURE [None]
  - VENOUS INJURY [None]
